FAERS Safety Report 6255041-9 (Version None)
Quarter: 2009Q3

REPORT INFORMATION
  Report Type: 
  Country: None (occurrence: None)
  Receive Date: 20090702
  Receipt Date: 20090623
  Transmission Date: 20100115
  Serious: Yes (Other)
  Sender: FDA-Public Use
  Company Number: JP-PFIZER INC-2009226254

PATIENT
  Age: 73 Year

DRUGS (4)
  1. SUNITINIB MALATE [Suspect]
     Indication: RENAL CELL CARCINOMA
     Dosage: 25 MG, 2X/DAY
     Route: 048
     Dates: start: 20090401, end: 20090421
  2. TAGAMET [Concomitant]
     Dosage: UNK
     Route: 048
  3. MOBIC [Concomitant]
     Dosage: UNK
     Route: 048
  4. MEVALOTIN [Concomitant]
     Dosage: UNK
     Route: 048

REACTIONS (4)
  - EPISTAXIS [None]
  - FACE OEDEMA [None]
  - HEPATIC FUNCTION ABNORMAL [None]
  - PLATELET COUNT DECREASED [None]
